FAERS Safety Report 9188824 (Version 2)
Quarter: 2013Q2

REPORT INFORMATION
  Report Type: Report from Study
  Country: JP (occurrence: JP)
  Receive Date: 20130326
  Receipt Date: 20130408
  Transmission Date: 20140414
  Serious: Yes (Death, Hospitalization)
  Sender: FDA-Public Use
  Company Number: JP-BRISTOL-MYERS SQUIBB COMPANY-18707034

PATIENT
  Age: 78 Year
  Sex: Male
  Weight: 38 kg

DRUGS (8)
  1. ABILIFY ORAL SOLUTION [Suspect]
     Indication: DELUSION
     Route: 048
     Dates: start: 20111101, end: 20111107
  2. NITRAZEPAM [Concomitant]
  3. ASPIRIN [Concomitant]
     Dates: end: 20111230
  4. HERBESSER [Concomitant]
     Dosage: TABS
  5. BLOPRESS [Concomitant]
     Dosage: TABS
  6. THYRADIN S [Concomitant]
     Dosage: TABS
  7. GASCON [Concomitant]
     Dosage: TABS
  8. MAGLAX [Concomitant]
     Dosage: TABS

REACTIONS (2)
  - Pneumonia aspiration [Fatal]
  - Pyrexia [Recovered/Resolved with Sequelae]
